FAERS Safety Report 6909395-8 (Version None)
Quarter: 2010Q3

REPORT INFORMATION
  Report Type: 
  Country: None (occurrence: None)
  Receive Date: 20100805
  Receipt Date: 20100729
  Transmission Date: 20110219
  Serious: Yes (Hospitalization)
  Sender: FDA-Public Use
  Company Number: US-RB-013653-10

PATIENT
  Age: 53 Year
  Sex: Female

DRUGS (2)
  1. SUBOXONE [Suspect]
     Indication: PAIN
     Route: 060
     Dates: start: 20080101
  2. SUBOXONE [Suspect]
     Dosage: SELF-WEANED OFF SUBOXONE, UNKNOWN DETAILS
     Route: 065

REACTIONS (4)
  - DRUG WITHDRAWAL SYNDROME [None]
  - EXOSTOSIS [None]
  - PAIN [None]
  - ROTATOR CUFF SYNDROME [None]
